FAERS Safety Report 18639410 (Version 1)
Quarter: 2020Q4

REPORT INFORMATION
  Report Type: Spontaneous
  Country: US (occurrence: US)
  Receive Date: 20201219
  Receipt Date: 20201219
  Transmission Date: 20210114
  Serious: No
  Sender: FDA-Public Use
  Company Number: US-ELI_LILLY_AND_COMPANY-US202012008784

PATIENT
  Sex: Male

DRUGS (3)
  1. INSULIN  LISPRO [Suspect]
     Active Substance: INSULIN LISPRO
     Indication: PRODUCT USED FOR UNKNOWN INDICATION
     Dosage: UNK UNK, UNKNOWN
     Route: 065
  2. METFORMIN [Concomitant]
     Active Substance: METFORMIN HYDROCHLORIDE
     Indication: PRODUCT USED FOR UNKNOWN INDICATION
  3. GLIPIZIDE. [Concomitant]
     Active Substance: GLIPIZIDE
     Indication: PRODUCT USED FOR UNKNOWN INDICATION

REACTIONS (9)
  - Agitation [Unknown]
  - Abdominal discomfort [Unknown]
  - Muscle spasms [Recovered/Resolved]
  - Vomiting [Unknown]
  - Illness [Unknown]
  - Headache [Unknown]
  - Irritability [Unknown]
  - Malaise [Unknown]
  - Wrong technique in product usage process [Unknown]
